FAERS Safety Report 16764341 (Version 1)
Quarter: 2019Q3

REPORT INFORMATION
  Report Type: Spontaneous
  Country: DK (occurrence: DK)
  Receive Date: 20190902
  Receipt Date: 20190902
  Transmission Date: 20191005
  Serious: Yes (Death, Other)
  Sender: FDA-Public Use
  Company Number: DK-GLAXOSMITHKLINE-B0624685A

PATIENT
  Age: 51 Year
  Sex: Female

DRUGS (12)
  1. ERYTHROMYCIN. [Concomitant]
     Active Substance: ERYTHROMYCIN
     Route: 042
     Dates: start: 20091102, end: 20091107
  2. PANODIL [Concomitant]
     Active Substance: ACETAMINOPHEN
     Route: 048
     Dates: end: 20091107
  3. UNKNOWN [Concomitant]
     Active Substance: UNSPECIFIED INGREDIENT
     Route: 042
     Dates: start: 20091104, end: 20091107
  4. RELENZA [Suspect]
     Active Substance: ZANAMIVIR
     Indication: INFLUENZA
     Route: 065
  5. KLACID [Concomitant]
     Active Substance: CLARITHROMYCIN
     Route: 042
     Dates: start: 20091104, end: 20091107
  6. METRONIDAZOLE. [Concomitant]
     Active Substance: METRONIDAZOLE
     Route: 042
     Dates: start: 20091102, end: 20091107
  7. DIFLUCAN [Concomitant]
     Active Substance: FLUCONAZOLE
     Route: 042
     Dates: start: 20091102, end: 20091103
  8. TAMIFLU [Suspect]
     Active Substance: OSELTAMIVIR PHOSPHATE
     Indication: INFLUENZA
     Route: 048
     Dates: start: 20091024, end: 20091111
  9. SOLU-MEDROL [Concomitant]
     Active Substance: METHYLPREDNISOLONE SODIUM SUCCINATE
     Dates: start: 20091105
  10. PRIMPERAN [Concomitant]
     Active Substance: METOCLOPRAMIDE HYDROCHLORIDE
     Route: 042
     Dates: start: 20091101, end: 20091108
  11. CASPOFUNGIN [Concomitant]
     Active Substance: CASPOFUNGIN
     Route: 042
     Dates: start: 20091107, end: 20091109
  12. MERONEM [Concomitant]
     Active Substance: MEROPENEM
     Route: 042
     Dates: start: 20091101, end: 20091108

REACTIONS (2)
  - Hepatic failure [Fatal]
  - Disseminated intravascular coagulation [Unknown]

NARRATIVE: CASE EVENT DATE: 20091107
